FAERS Safety Report 14352220 (Version 1)
Quarter: 2018Q1

REPORT INFORMATION
  Report Type: Spontaneous
  Country: US (occurrence: US)
  Receive Date: 20180104
  Receipt Date: 20180104
  Transmission Date: 20180509
  Serious: Yes (Life-Threatening)
  Sender: FDA-Public Use
  Company Number: US-FRESENIUS KABI-FK201800136

PATIENT
  Age: 63 Year
  Sex: Male

DRUGS (1)
  1. BACITRACIN (MANUFACTURER UNKNOWN) [Suspect]
     Active Substance: BACITRACIN
     Indication: SCLERAL BUCKLING SURGERY
     Route: 031

REACTIONS (3)
  - Anaphylactic reaction [Recovered/Resolved]
  - Product use in unapproved indication [Recovered/Resolved]
  - Product use issue [Recovered/Resolved]
